FAERS Safety Report 8184738-9 (Version None)
Quarter: 2012Q1

REPORT INFORMATION
  Report Type: 
  Country: None (occurrence: None)
  Receive Date: 20120305
  Receipt Date: 20120305
  Transmission Date: 20120608
  Serious: No
  Sender: FDA-Public Use
  Company Number: None

PATIENT
  Age: 78 Year
  Sex: Female
  Weight: 72.574 kg

DRUGS (1)
  1. LYRICA [Suspect]
     Indication: FIBROMYALGIA
     Dosage: 50.0 MG
     Route: 048
     Dates: start: 20120229, end: 20120301

REACTIONS (5)
  - HEART RATE DECREASED [None]
  - PAIN [None]
  - PARALYSIS [None]
  - LOSS OF CONTROL OF LEGS [None]
  - SPEECH DISORDER [None]
